FAERS Safety Report 17403225 (Version 1)
Quarter: 2020Q1

REPORT INFORMATION
  Report Type: Spontaneous
  Country: TR (occurrence: TR)
  Receive Date: 20200211
  Receipt Date: 20200211
  Transmission Date: 20200409
  Serious: Yes (Other)
  Sender: FDA-Public Use
  Company Number: NVSC2020TR033357

PATIENT
  Age: 58 Year
  Sex: Female

DRUGS (4)
  1. BUPIVACAINE. [Suspect]
     Active Substance: BUPIVACAINE
     Indication: INTERVERTEBRAL DISC PROTRUSION
     Dosage: 20 ML
     Route: 065
  2. METHYLPREDNISOLONE. [Suspect]
     Active Substance: METHYLPREDNISOLONE
     Indication: INTERVERTEBRAL DISC PROTRUSION
     Dosage: 1 ML
     Route: 065
  3. SALINE [Suspect]
     Active Substance: SODIUM CHLORIDE
     Indication: INTERVERTEBRAL DISC PROTRUSION
     Dosage: 9 ML
     Route: 065
  4. LIDOCAINE. [Suspect]
     Active Substance: LIDOCAINE
     Indication: INTERVERTEBRAL DISC PROTRUSION
     Dosage: 10 ML
     Route: 065

REACTIONS (3)
  - Product use in unapproved indication [Unknown]
  - Toxicity to various agents [Recovered/Resolved]
  - Seizure [Recovered/Resolved]
